FAERS Safety Report 5715926-6 (Version None)
Quarter: 2008Q2

REPORT INFORMATION
  Report Type: 
  Country: None (occurrence: None)
  Receive Date: 20080424
  Receipt Date: 20080416
  Transmission Date: 20081010
  Serious: Yes (Other)
  Sender: FDA-Public Use
  Company Number: US-ROCHE-527505

PATIENT
  Sex: Male
  Weight: 117.9 kg

DRUGS (8)
  1. ACCUTANE [Suspect]
     Dosage: REPORTED AS 40MG QD
     Route: 065
     Dates: start: 20000131
  2. ACCUTANE [Suspect]
     Dosage: REPORTED AS 40MG BID
     Route: 065
     Dates: start: 20000228
  3. ACCUTANE [Suspect]
     Dosage: REPORTED AS 40MG AM AND 60MG PM
     Route: 065
     Dates: start: 20000324, end: 20000621
  4. CLARITIN [Concomitant]
  5. ALBUTEROL [Concomitant]
     Indication: ASTHMA
  6. SEREVENT [Concomitant]
  7. ADVIL [Concomitant]
     Dosage: REPORTED AS NEEDED
  8. IBUPROFEN [Concomitant]
     Dosage: REPORTED AS NEEDED

REACTIONS (17)
  - ANAL ABSCESS [None]
  - BLOOD BILIRUBIN INCREASED [None]
  - COLITIS [None]
  - CROHN'S DISEASE [None]
  - DEPRESSED MOOD [None]
  - FATIGUE [None]
  - GASTROINTESTINAL TRACT ADENOMA [None]
  - GASTROOESOPHAGEAL REFLUX DISEASE [None]
  - ILEITIS [None]
  - INFLAMMATORY BOWEL DISEASE [None]
  - IRRITABILITY [None]
  - IRRITABLE BOWEL SYNDROME [None]
  - LIP DRY [None]
  - LYMPHADENOPATHY [None]
  - MOOD ALTERED [None]
  - PILONIDAL CYST [None]
  - WEIGHT DECREASED [None]
